FAERS Safety Report 20015524 (Version 1)
Quarter: 2021Q4

REPORT INFORMATION
  Report Type: Spontaneous
  Country: US (occurrence: None)
  Receive Date: 20211029
  Receipt Date: 20211029
  Transmission Date: 20220304
  Serious: Yes (Hospitalization)
  Sender: FDA-Public Use
  Company Number: None

PATIENT
  Age: 62 Year
  Sex: Male

DRUGS (11)
  1. TADALAFIL [Suspect]
     Active Substance: TADALAFIL
     Indication: Pulmonary hypertension
     Dosage: FREQUENCY : TWICE DAILY;?
     Route: 048
     Dates: start: 20181126
  2. ADCIRCA [Concomitant]
     Active Substance: TADALAFIL
  3. FUROSEMIDE [Concomitant]
     Active Substance: FUROSEMIDE
  4. JARDIANCE [Concomitant]
     Active Substance: EMPAGLIFLOZIN
  5. LANTUS SOLOS [Concomitant]
  6. NOVOLOG [Concomitant]
     Active Substance: INSULIN ASPART
  7. OPSUMIT [Concomitant]
     Active Substance: MACITENTAN
  8. SPIRONOLACTONE [Concomitant]
     Active Substance: SPIRONOLACTONE
  9. TADALAFIL [Concomitant]
     Active Substance: TADALAFIL
  10. TYVASO [Concomitant]
     Active Substance: TREPROSTINIL
  11. ZOFRAN [Concomitant]
     Active Substance: ONDANSETRON HYDROCHLORIDE

REACTIONS (3)
  - Economic problem [None]
  - Product dose omission issue [None]
  - Hypervolaemia [None]

NARRATIVE: CASE EVENT DATE: 20211018
